FAERS Safety Report 24440514 (Version 2)
Quarter: 2025Q3

REPORT INFORMATION
  Report Type: Report from Study
  Country: US (occurrence: US)
  Receive Date: 20241016
  Receipt Date: 20250716
  Transmission Date: 20251021
  Serious: Yes (Other)
  Sender: ABBVIE
  Company Number: US-ABBVIE-5961445

PATIENT
  Age: 41 Year
  Sex: Male

DRUGS (2)
  1. RINVOQ [Suspect]
     Active Substance: UPADACITINIB
     Indication: Dermatitis atopic
     Dosage: STRENGTH- 15 MG
     Route: 048
     Dates: start: 202302, end: 20240901
  2. RINVOQ [Suspect]
     Active Substance: UPADACITINIB
     Indication: Dermatitis atopic
     Dosage: STRENGTH- 15 MG
     Route: 048
     Dates: start: 202409

REACTIONS (5)
  - Sports injury [Unknown]
  - Rash erythematous [Recovering/Resolving]
  - Dermatitis atopic [Not Recovered/Not Resolved]
  - Pain of skin [Unknown]
  - Dry skin [Unknown]

NARRATIVE: CASE EVENT DATE: 20240101
